FAERS Safety Report 20168103 (Version 3)
Quarter: 2021Q4

REPORT INFORMATION
  Report Type: Report from Study
  Country: TR (occurrence: TR)
  Receive Date: 20211210
  Receipt Date: 20211222
  Transmission Date: 20220304
  Serious: Yes (Other)
  Sender: FDA-Public Use
  Company Number: TR-ABBVIE-21K-161-4189747-00

PATIENT
  Age: 70 Year
  Sex: Male

DRUGS (8)
  1. CARBIDOPA\LEVODOPA [Suspect]
     Active Substance: CARBIDOPA\LEVODOPA
     Indication: Parkinson^s disease
     Dosage: MORNING DOSE (ML): 5.50 CONTINUOUS DOSE (ML): 2.80 EXTRA DOSE (ML): 1.00
     Route: 050
     Dates: start: 20211207, end: 20211208
  2. CARBIDOPA\LEVODOPA [Suspect]
     Active Substance: CARBIDOPA\LEVODOPA
     Dosage: MORNING DOSE (ML): 5.50 CONTINIOUS DOSE (ML): 3.00 EXTRA DOSE (ML): 1.00
     Route: 050
     Dates: start: 20211210, end: 20211216
  3. CARBIDOPA\LEVODOPA [Suspect]
     Active Substance: CARBIDOPA\LEVODOPA
     Dosage: MORNING DOSE (ML): 5.50 CONTINIOUS DOSE (ML): 4.20 EXTRA DOSE (ML): 1.00
     Route: 050
     Dates: start: 20211216
  4. KETYA [Concomitant]
     Indication: Parkinson^s disease
     Dosage: 2X0.5
     Route: 048
  5. MODIWAKE [Concomitant]
     Indication: Parkinson^s disease
     Route: 048
  6. SILODOSIN [Concomitant]
     Active Substance: SILODOSIN
     Indication: Parkinson^s disease
     Route: 048
  7. PERGE [Concomitant]
     Indication: Parkinson^s disease
     Route: 048
  8. RIVOTRIL [Concomitant]
     Active Substance: CLONAZEPAM
     Indication: Parkinson^s disease
     Dosage: 2.5 MG
     Route: 048

REACTIONS (7)
  - Oxygen saturation decreased [Recovered/Resolved]
  - Hypophagia [Recovered/Resolved]
  - Abdominal distension [Recovered/Resolved]
  - Bradycardia [Recovered/Resolved]
  - Gastrointestinal disorder [Recovered/Resolved]
  - Abdominal pain [Recovered/Resolved]
  - Diarrhoea [Recovered/Resolved]

NARRATIVE: CASE EVENT DATE: 20211201
